FAERS Safety Report 23371853 (Version 2)
Quarter: 2024Q1

REPORT INFORMATION
  Report Type: Spontaneous
  Country: CN (occurrence: CN)
  Receive Date: 20240105
  Receipt Date: 20240222
  Transmission Date: 20240409
  Serious: Yes (Hospitalization, Other)
  Sender: FDA-Public Use
  Company Number: CN-PFIZER INC-PV202300210238

PATIENT
  Age: 2 Year
  Sex: Female

DRUGS (3)
  1. AZITHROMYCIN [Suspect]
     Active Substance: AZITHROMYCIN
     Indication: Pneumonia
     Dosage: 160 MG, 1X/DAY
     Route: 048
     Dates: start: 20231117, end: 20231119
  2. CEFIXIME [Suspect]
     Active Substance: CEFIXIME
     Indication: Pneumonia
     Dosage: 50 MG, 2X/DAY
     Route: 048
     Dates: start: 20231117, end: 20231119
  3. JACOBAEA CANNABIFOLIA [Concomitant]
     Indication: Pneumonia
     Dosage: UNK
     Route: 048

REACTIONS (2)
  - Rash [Recovering/Resolving]
  - Rash erythematous [Recovering/Resolving]

NARRATIVE: CASE EVENT DATE: 20231119
